FAERS Safety Report 4318326-9 (Version None)
Quarter: 2004Q1

REPORT INFORMATION
  Report Type: 
  Country: None (occurrence: None)
  Receive Date: 20040317
  Receipt Date: 20040223
  Transmission Date: 20041129
  Serious: Yes (Death, Hospitalization)
  Sender: FDA-Public Use
  Company Number: WAES 0402USA01739

PATIENT
  Age: 45 Year
  Sex: Male
  Weight: 55 kg

DRUGS (1)
  1. STROMECTOL [Suspect]
     Route: 048
     Dates: start: 20031214, end: 20031214

REACTIONS (12)
  - ABASIA [None]
  - APHASIA [None]
  - ASTHENIA [None]
  - BLOOD PRESSURE INCREASED [None]
  - COMA [None]
  - COUGH [None]
  - DECUBITUS ULCER [None]
  - HYPERHIDROSIS [None]
  - MYALGIA [None]
  - RELAPSING FEVER [None]
  - SPEECH DISORDER [None]
  - WHITE BLOOD CELL COUNT INCREASED [None]
